FAERS Safety Report 12137466 (Version 1)
Quarter: 2016Q1

REPORT INFORMATION
  Report Type: Spontaneous
  Country: FR (occurrence: FR)
  Receive Date: 20160302
  Receipt Date: 20160302
  Transmission Date: 20160526
  Serious: Yes (Hospitalization)
  Sender: FDA-Public Use
  Company Number: FR-PFIZER INC-2016120927

PATIENT
  Age: 48 Year
  Sex: Female

DRUGS (6)
  1. ALPRAZOLAM. [Suspect]
     Active Substance: ALPRAZOLAM
     Dosage: 7.5 MG (0.25 MG, 30 TABLETS), SINGLE
     Route: 048
     Dates: start: 20160128, end: 20160128
  2. ATORVASTATIN CALCIUM. [Suspect]
     Active Substance: ATORVASTATIN CALCIUM
     Dosage: 960 MG (40 MG, 24 TABLETS), SINGLE
     Route: 048
     Dates: start: 20160128, end: 20160128
  3. RELPAX [Suspect]
     Active Substance: ELETRIPTAN HYDROBROMIDE
     Dosage: 960 MG (40 MG,  24 TABLETS), SINGLE
     Route: 048
     Dates: start: 20160128, end: 20160128
  4. PAROXETINE MESILATE [Suspect]
     Active Substance: PAROXETINE MESYLATE
     Dosage: 280 MG (20MG, 14 TABLETS), SINGLE
     Route: 048
     Dates: start: 20160128, end: 20160128
  5. ATARAX [Suspect]
     Active Substance: HYDROXYZINE\HYDROXYZINE HYDROCHLORIDE
     Dosage: 350 MG (25MG, 14 TABLETS), SINGLE
     Route: 048
     Dates: start: 20160128, end: 20160128
  6. ZOLPIDEM [Suspect]
     Active Substance: ZOLPIDEM\ZOLPIDEM TARTRATE
     Dosage: 130 MG (10 MG, 13 TABLETS), SINGLE
     Route: 048
     Dates: start: 20160128, end: 20160128

REACTIONS (4)
  - Diarrhoea [Recovered/Resolved]
  - Toxicity to various agents [Recovered/Resolved]
  - Intentional overdose [Unknown]
  - Somnolence [Recovered/Resolved]

NARRATIVE: CASE EVENT DATE: 20160128
